FAERS Safety Report 18266719 (Version 1)
Quarter: 2020Q3

REPORT INFORMATION
  Report Type: Spontaneous
  Country: US (occurrence: US)
  Receive Date: 20200914
  Receipt Date: 20200914
  Transmission Date: 20201103
  Serious: Yes (Hospitalization)
  Sender: FDA-Public Use
  Company Number: None

PATIENT
  Age: 42 Year
  Sex: Female
  Weight: 58.97 kg

DRUGS (1)
  1. MIRENA [Suspect]
     Active Substance: LEVONORGESTREL

REACTIONS (6)
  - Pain [None]
  - Urinary tract infection [None]
  - Cystitis [None]
  - Orgasm abnormal [None]
  - Device dislocation [None]
  - Vision blurred [None]

NARRATIVE: CASE EVENT DATE: 20200526
